FAERS Safety Report 4527011-X (Version None)
Quarter: 2004Q4

REPORT INFORMATION
  Report Type: 
  Country: None (occurrence: None)
  Receive Date: 20041201
  Receipt Date: 20040903
  Transmission Date: 20050328
  Serious: No
  Sender: FDA-Public Use
  Company Number: MPS1-10280

PATIENT
  Age: 15 Year
  Sex: Female
  Weight: 19.9583 kg

DRUGS (2)
  1. ALDURAZYME [Suspect]
     Indication: MUCOPOLYSACCHARIDOSIS I
     Dosage: 11.6 MG QWK IV
     Route: 042
     Dates: start: 20031105, end: 20031201
  2. ALDURAZYME [Suspect]
     Indication: MUCOPOLYSACCHARIDOSIS I
     Dosage: 11.6 MG QWK IV
     Route: 042
     Dates: start: 20040301

REACTIONS (2)
  - BLOOD AMYLASE INCREASED [None]
  - HEPATOMEGALY [None]
